FAERS Safety Report 9529996 (Version 1)
Quarter: 2013Q3

REPORT INFORMATION
  Report Type: Spontaneous
  Country: IT (occurrence: IT)
  Receive Date: 20130917
  Receipt Date: 20130917
  Transmission Date: 20140515
  Serious: No
  Sender: FDA-Public Use
  Company Number: PHHY2013IT103158

PATIENT
  Age: 53 Year
  Sex: Female

DRUGS (3)
  1. ZOMETA [Suspect]
     Indication: METASTASES TO BONE
     Dosage: 4 MG/KG, MONTHLY
     Route: 042
     Dates: start: 20120423, end: 20130611
  2. AVASTIN [Concomitant]
     Dosage: UNK UKN, UNK
  3. HORMONES NOS [Concomitant]
     Dosage: UNK UKN, UNK

REACTIONS (2)
  - Exposed bone in jaw [Unknown]
  - Pain in jaw [Recovering/Resolving]
